FAERS Safety Report 23688819 (Version 1)
Quarter: 2024Q1

REPORT INFORMATION
  Report Type: Report from Study
  Country: US (occurrence: US)
  Receive Date: 20240329
  Receipt Date: 20240329
  Transmission Date: 20240409
  Serious: Yes (Life-Threatening, Hospitalization, Other)
  Sender: FDA-Public Use
  Company Number: US-GILEAD-2024-0667025

PATIENT
  Age: 53 Year
  Sex: Female

DRUGS (32)
  1. AMBRISENTAN [Suspect]
     Active Substance: AMBRISENTAN
     Indication: Pulmonary arterial hypertension
     Dosage: 10 MG, QD (DRUG START DATE: 29-AUG-2023)
     Route: 048
     Dates: end: 202401
  2. REMODULIN [Suspect]
     Active Substance: TREPROSTINIL
     Indication: Pulmonary arterial hypertension
     Dosage: 0.060 UG/KG (DRUG START DATE: 2023)
     Route: 058
  3. REMODULIN [Suspect]
     Active Substance: TREPROSTINIL
     Dosage: 0.010 UG/KG
     Route: 058
  4. REMODULIN [Suspect]
     Active Substance: TREPROSTINIL
     Dosage: UNK
     Route: 058
     Dates: start: 20230830
  5. REMODULIN [Suspect]
     Active Substance: TREPROSTINIL
     Dosage: UNK
     Route: 058
     Dates: end: 202401
  6. PREDNISOLONE [Suspect]
     Active Substance: PREDNISOLONE
     Indication: Autoimmune hepatitis
     Dosage: 40 MG, QD
     Route: 048
  7. SODIUM CHLORIDE [Suspect]
     Active Substance: SODIUM CHLORIDE
     Indication: Product used for unknown indication
     Dosage: UNK
     Route: 065
  8. LOPRESSOR [Concomitant]
     Active Substance: METOPROLOL TARTRATE
  9. TADALAFIL [Concomitant]
     Active Substance: TADALAFIL
  10. KETAMINE HYDROCHLORIDE [Concomitant]
     Active Substance: KETAMINE HYDROCHLORIDE
  11. LECITHIN [Concomitant]
     Active Substance: LECITHIN
  12. KLOR-CON M10 [Concomitant]
     Active Substance: POTASSIUM CHLORIDE
  13. ALBUTEROL SULFATE [Concomitant]
     Active Substance: ALBUTEROL SULFATE
  14. CLONIDINE [Concomitant]
     Active Substance: CLONIDINE
  15. KETOPROFEN [Concomitant]
     Active Substance: KETOPROFEN
  16. OXYGEN [Concomitant]
     Active Substance: OXYGEN
  17. EFFEXOR [Concomitant]
     Active Substance: VENLAFAXINE HYDROCHLORIDE
  18. LIDOCAINE HYDROCHLORIDE [Concomitant]
     Active Substance: LIDOCAINE HYDROCHLORIDE
  19. ACETAMINOPHEN [Concomitant]
     Active Substance: ACETAMINOPHEN
  20. ACETAMINOPHEN AND CODEINE [Concomitant]
     Active Substance: ACETAMINOPHEN\CODEINE PHOSPHATE
  21. NEURONTIN [Concomitant]
     Active Substance: GABAPENTIN
  22. AMITRIPTYLINE [Concomitant]
     Active Substance: AMITRIPTYLINE
  23. POLOXAMER [Concomitant]
     Active Substance: POLOXAMER
  24. DEMADEX [Concomitant]
     Active Substance: TORSEMIDE
  25. UPTRAVI [Concomitant]
     Active Substance: SELEXIPAG
  26. OMEPRAZOLE [Concomitant]
     Active Substance: OMEPRAZOLE
  27. VENTOLIN [Concomitant]
     Active Substance: ALBUTEROL SULFATE
  28. ZOFRAN [Concomitant]
     Active Substance: ONDANSETRON HYDROCHLORIDE
  29. FERROUS SULFATE [Concomitant]
     Active Substance: FERROUS SULFATE
  30. ASPIRIN [Concomitant]
     Active Substance: ASPIRIN
  31. LYRICA [Concomitant]
     Active Substance: PREGABALIN
  32. ALBUTEROL SULFATE [Concomitant]
     Active Substance: ALBUTEROL SULFATE

REACTIONS (24)
  - Vomiting [Not Recovered/Not Resolved]
  - Abdominal pain upper [Not Recovered/Not Resolved]
  - Abdominal discomfort [Recovered/Resolved]
  - Hepatic failure [Unknown]
  - Hypertransaminasaemia [Unknown]
  - Neuropathy peripheral [Unknown]
  - Respiratory failure [Unknown]
  - Pericardial effusion [Unknown]
  - Left ventricular failure [Unknown]
  - Autoimmune hepatitis [Unknown]
  - Primary biliary cholangitis [Unknown]
  - Gastrointestinal disorder [Unknown]
  - Diarrhoea [Unknown]
  - Infusion site swelling [Unknown]
  - Malaise [Unknown]
  - Condition aggravated [Unknown]
  - Tachycardia [Unknown]
  - Hypovolaemia [Unknown]
  - Oedema peripheral [Not Recovered/Not Resolved]
  - Diet noncompliance [Unknown]
  - Weight increased [Unknown]
  - Anaemia folate deficiency [Not Recovered/Not Resolved]
  - Early satiety [Unknown]
  - Nocturia [Unknown]

NARRATIVE: CASE EVENT DATE: 20230801
